FAERS Safety Report 14145768 (Version 2)
Quarter: 2018Q1

REPORT INFORMATION
  Report Type: Spontaneous
  Country: JP (occurrence: JP)
  Receive Date: 20171031
  Receipt Date: 20180222
  Transmission Date: 20180508
  Serious: Yes (Death, Life-Threatening)
  Sender: FDA-Public Use
  Company Number: JP-PFIZER INC-2017465708

PATIENT
  Age: 66 Year
  Sex: Female
  Weight: 64 kg

DRUGS (14)
  1. TEICOPLANIN [Suspect]
     Active Substance: TEICOPLANIN
     Indication: INFECTION PROPHYLAXIS
     Dosage: 300 MG, 2X/DAY
     Dates: start: 20170630, end: 20170710
  2. RUXOLITINIB PHOSPHATE [Suspect]
     Active Substance: RUXOLITINIB PHOSPHATE
     Dosage: 10 MG, 2X/DAY (REDUCED FROM THE EVENING)
     Route: 048
     Dates: start: 20170614
  3. RUXOLITINIB PHOSPHATE [Suspect]
     Active Substance: RUXOLITINIB PHOSPHATE
     Dosage: UNK
     Route: 048
     Dates: start: 20170628
  4. METHYLPREDNISOLONE. [Concomitant]
     Active Substance: METHYLPREDNISOLONE
     Dosage: UNK
  5. MEROPEN [Suspect]
     Active Substance: MEROPENEM
     Dosage: UNK
     Dates: start: 20170703, end: 20170710
  6. RUXOLITINIB PHOSPHATE [Suspect]
     Active Substance: RUXOLITINIB PHOSPHATE
     Dosage: 5 MG, 2X/DAY
     Route: 048
     Dates: start: 20170615
  7. RUXOLITINIB PHOSPHATE [Suspect]
     Active Substance: RUXOLITINIB PHOSPHATE
     Dosage: 5 MG, 1X/DAY (REDUCED DOSE)
     Route: 048
     Dates: start: 20170703
  8. PROGRAF [Suspect]
     Active Substance: TACROLIMUS\TACROLIMUS ANHYDROUS
     Dosage: 0.2 MG, DAILY
     Route: 012
     Dates: start: 20170708
  9. AMBISOME [Suspect]
     Active Substance: AMPHOTERICIN B
     Indication: INFECTION PROPHYLAXIS
     Dosage: UNK
     Dates: end: 20170710
  10. PROGRAF [Suspect]
     Active Substance: TACROLIMUS\TACROLIMUS ANHYDROUS
     Dosage: 0.2 MG, DAILY
     Route: 012
  11. RUXOLITINIB PHOSPHATE [Suspect]
     Active Substance: RUXOLITINIB PHOSPHATE
     Indication: ACUTE GRAFT VERSUS HOST DISEASE
     Dosage: 20 MG, 1X/DAY
     Route: 048
     Dates: start: 20170609
  12. RUXOLITINIB PHOSPHATE [Suspect]
     Active Substance: RUXOLITINIB PHOSPHATE
     Dosage: 5 MG, 2X/DAY
     Route: 048
     Dates: start: 20170619
  13. PROGRAF [Suspect]
     Active Substance: TACROLIMUS\TACROLIMUS ANHYDROUS
     Dosage: UNK
     Route: 012
  14. PROGRAF [Suspect]
     Active Substance: TACROLIMUS\TACROLIMUS ANHYDROUS
     Dosage: 0.2 MG, DAILY
     Route: 012

REACTIONS (1)
  - Acute kidney injury [Fatal]

NARRATIVE: CASE EVENT DATE: 20170703
